FAERS Safety Report 6749889-1 (Version None)
Quarter: 2010Q2

REPORT INFORMATION
  Report Type: 
  Country: None (occurrence: None)
  Receive Date: 20100601
  Receipt Date: 20100518
  Transmission Date: 20101027
  Serious: Yes (Hospitalization)
  Sender: FDA-Public Use
  Company Number: ES-ELI_LILLY_AND_COMPANY-ES201005005154

PATIENT
  Sex: Male
  Weight: 43 kg

DRUGS (7)
  1. FORTEO [Suspect]
     Indication: OSTEOPOROSIS
     Dosage: 20 UG, DAILY (1/D)
     Route: 058
     Dates: start: 20100301, end: 20100515
  2. ENALAPRIL [Concomitant]
     Indication: HYPERTENSION
     Dosage: 1 C, DAILY (1/D)
     Route: 048
  3. SEGURIL [Concomitant]
     Indication: HYPERTENSION
     Dosage: 40 MG, DAILY (1/D)
     Route: 048
  4. DIGOXIN [Concomitant]
     Indication: ARRHYTHMIA
     Dosage: 1 C 0.25 MG, 48H
     Route: 048
  5. BOI K [Concomitant]
     Dosage: 500, 1C, DAILY (1/D)
     Route: 048
  6. DURAGESIC-100 [Concomitant]
     Indication: PAIN
     Dosage: 25 MG, 72H
     Route: 061
  7. OMEPRAZOLE [Concomitant]
     Indication: GASTRIC ULCER
     Dosage: 20 MG, DAILY (1/D)
     Route: 048

REACTIONS (1)
  - MELAENA [None]
